FAERS Safety Report 14714071 (Version 1)
Quarter: 2018Q2

REPORT INFORMATION
  Report Type: Spontaneous
  Country: GB (occurrence: GB)
  Receive Date: 20180404
  Receipt Date: 20180404
  Transmission Date: 20180711
  Serious: Yes (Hospitalization)
  Sender: FDA-Public Use
  Company Number: GB-MYLANLABS-2018M1020338

PATIENT
  Age: 51 Year
  Sex: Female

DRUGS (2)
  1. BISOPROLOL [Suspect]
     Active Substance: BISOPROLOL
     Indication: HYPERTENSION
     Dosage: 10 MG, UNK
  2. VERAPAMIL [Suspect]
     Active Substance: VERAPAMIL HYDROCHLORIDE
     Indication: HYPERTENSION
     Dosage: 120 MG, UNCLEAR HOW MANY TABLETS THE PATIENT HAS TAKEN IN RECENT DAYS

REACTIONS (7)
  - Renal impairment [Unknown]
  - Shock [Unknown]
  - Hepatic function abnormal [Unknown]
  - Cardiovascular disorder [Unknown]
  - Cerebral disorder [Unknown]
  - Accidental overdose [Unknown]
  - Drug prescribing error [Unknown]

NARRATIVE: CASE EVENT DATE: 20171006
